FAERS Safety Report 16674644 (Version 1)
Quarter: 2019Q3

REPORT INFORMATION
  Report Type: Spontaneous
  Country: CA (occurrence: CA)
  Receive Date: 20190806
  Receipt Date: 20190806
  Transmission Date: 20191004
  Serious: Yes (Other)
  Sender: FDA-Public Use
  Company Number: CA-TEVA-2019-CA-1087395

PATIENT
  Sex: Male

DRUGS (5)
  1. COCAINE [Interacting]
     Active Substance: COCAINE
  2. METAMFETAMINE HYDROCHLORIDE [Interacting]
     Active Substance: METHAMPHETAMINE HYDROCHLORIDE
  3. FENTANYL. [Interacting]
     Active Substance: FENTANYL
  4. HYDROMORPHONE HYDROCHLORIDE. [Suspect]
     Active Substance: HYDROMORPHONE HYDROCHLORIDE
     Indication: DRUG WITHDRAWAL MAINTENANCE THERAPY
     Route: 065
  5. HYDROMORPHONE HYDROCHLORIDE. [Interacting]
     Active Substance: HYDROMORPHONE HYDROCHLORIDE
     Indication: DRUG DEPENDENCE
     Route: 042

REACTIONS (5)
  - Dyskinesia [Recovered/Resolved]
  - Psychotic disorder [Recovered/Resolved]
  - Dysphemia [Recovered/Resolved]
  - Tremor [Recovered/Resolved]
  - Drug interaction [Recovered/Resolved]
